APPROVED DRUG PRODUCT: TORSEMIDE
Active Ingredient: TORSEMIDE
Strength: 20MG
Dosage Form/Route: TABLET;ORAL
Application: A078478 | Product #003
Applicant: SUN PHARMACEUTICAL INDUSTRIES LTD
Approved: Feb 26, 2008 | RLD: No | RS: No | Type: DISCN